FAERS Safety Report 7371278-X (Version None)
Quarter: 2011Q1

REPORT INFORMATION
  Report Type: 
  Country: None (occurrence: None)
  Receive Date: 20110316
  Receipt Date: 20110313
  Transmission Date: 20110831
  Serious: Yes (Other)
  Sender: FDA-Public Use
  Company Number: CL-297-2011

PATIENT
  Age: 65 Year
  Sex: Male

DRUGS (1)
  1. AMIODARONE UNK [Suspect]
     Indication: ATRIAL FIBRILLATION

REACTIONS (1)
  - HYPERTHYROIDISM [None]
